FAERS Safety Report 7308036-8 (Version None)
Quarter: 2011Q1

REPORT INFORMATION
  Report Type: 
  Country: None (occurrence: None)
  Receive Date: 20110223
  Receipt Date: 20100914
  Transmission Date: 20110831
  Serious: Yes (Hospitalization)
  Sender: FDA-Public Use
  Company Number: US-BAYER-201018776NA

PATIENT
  Sex: Female
  Weight: 104 kg

DRUGS (12)
  1. VICODIN [Concomitant]
     Dosage: UNK
     Dates: start: 20071102
  2. VICODIN [Concomitant]
     Dosage: UNK
     Dates: start: 20080215
  3. VICODIN [Concomitant]
     Dosage: UNK
     Dates: start: 20080208
  4. YAZ [Suspect]
     Indication: PREMENSTRUAL SYNDROME
     Dosage: UNK
     Route: 048
     Dates: start: 20070310, end: 20080209
  5. MOTRIN [Concomitant]
     Dosage: UNK
     Dates: start: 20080215
  6. VICODIN [Concomitant]
     Indication: SUBCUTANEOUS ABSCESS
     Dosage: UNK
     Dates: start: 20080224
  7. IBUPROFEN [Concomitant]
     Dosage: UNK
     Dates: start: 20080208
  8. ZANTAC [Concomitant]
     Dosage: UNK
     Dates: start: 20071102
  9. KEFLEX [Concomitant]
     Indication: SUBCUTANEOUS ABSCESS
     Dosage: UNK
     Dates: start: 20080224
  10. SEPTRA [Concomitant]
     Indication: SUBCUTANEOUS ABSCESS
     Dosage: UNK
     Dates: start: 20080224
  11. PHENERGAN [Concomitant]
     Dosage: UNK
     Dates: start: 20071102
  12. BACTRIM [Concomitant]
     Indication: SUBCUTANEOUS ABSCESS
     Dosage: UNK
     Dates: start: 20080224

REACTIONS (8)
  - BILIARY COLIC [None]
  - HYDROCHOLECYSTIS [None]
  - CHOLECYSTITIS CHRONIC [None]
  - EOSINOPHIL COUNT INCREASED [None]
  - PERITONEAL ADHESIONS [None]
  - CHOLELITHIASIS [None]
  - PAIN [None]
  - ABDOMINAL PAIN UPPER [None]
